FAERS Safety Report 21647619 (Version 2)
Quarter: 2024Q2

REPORT INFORMATION
  Report Type: Report from Study
  Country: US (occurrence: US)
  Receive Date: 20221128
  Receipt Date: 20240423
  Transmission Date: 20240716
  Serious: No
  Sender: FDA-Public Use
  Company Number: US-ABBVIE-4171390

PATIENT
  Sex: Female
  Weight: 53.523 kg

DRUGS (3)
  1. SYNTHROID [Suspect]
     Active Substance: LEVOTHYROXINE SODIUM
     Indication: Hypothyroidism
     Dosage: FORM STRENGTH: 100 MICROGRAM
     Route: 048
     Dates: start: 2002
  2. SYNTHROID [Suspect]
     Active Substance: LEVOTHYROXINE SODIUM
     Indication: Hypothyroidism
     Route: 048
  3. PREMARIN [Suspect]
     Active Substance: ESTROGENS, CONJUGATED
     Indication: Product used for unknown indication
     Route: 065

REACTIONS (11)
  - Circadian rhythm sleep disorder [Not Recovered/Not Resolved]
  - Thyroid function test abnormal [Not Recovered/Not Resolved]
  - Blood oestrogen abnormal [Not Recovered/Not Resolved]
  - Constipation [Unknown]
  - Pollakiuria [Unknown]
  - Nephritis [Unknown]
  - Nephrolithiasis [Recovered/Resolved]
  - Alopecia [Unknown]
  - Hypoglycaemia [Not Recovered/Not Resolved]
  - Disturbance in attention [Not Recovered/Not Resolved]
  - Nephrolithiasis [Not Recovered/Not Resolved]

NARRATIVE: CASE EVENT DATE: 20030101
